FAERS Safety Report 7073383-4 (Version None)
Quarter: 2010Q4

REPORT INFORMATION
  Report Type: 
  Country: None (occurrence: None)
  Receive Date: 20101029
  Receipt Date: 20100908
  Transmission Date: 20110411
  Serious: No
  Sender: FDA-Public Use
  Company Number: US-BAYER-201021339BCC

PATIENT
  Age: 49 Year
  Sex: Male
  Weight: 100 kg

DRUGS (4)
  1. ALEVE [Suspect]
     Indication: ARTHRALGIA
     Dosage: AS USED: 440 MG  UNIT DOSE: 220 MG
     Route: 048
     Dates: start: 20100908
  2. OXYCONTIN [Concomitant]
  3. 81MG STORE BRAND ASPIRIN [Concomitant]
  4. VITAMIN B-12 [Concomitant]
     Dosage: SHOTS MONTHLY

REACTIONS (1)
  - GLOSSODYNIA [None]
